FAERS Safety Report 12109850 (Version 1)
Quarter: 2016Q1

REPORT INFORMATION
  Report Type: Spontaneous
  Country: US (occurrence: None)
  Receive Date: 20160222
  Receipt Date: 20160222
  Transmission Date: 20160526
  Serious: Yes (Hospitalization, Disabling)
  Sender: FDA-Public Use
  Company Number: None

PATIENT
  Age: 28 Year
  Sex: Male

DRUGS (16)
  1. ALBUTEROL. [Concomitant]
     Active Substance: ALBUTEROL
  2. DOCUSATE [Concomitant]
     Active Substance: DOCUSATE
  3. METHYLPREDNISOLONE. [Concomitant]
     Active Substance: METHYLPREDNISOLONE
  4. POLYETHYLENE GLYCOL [Concomitant]
     Active Substance: POLYETHYLENE GLYCOLS
  5. ASCORBIC ACID. [Concomitant]
     Active Substance: ASCORBIC ACID
  6. CHOLECALCIFEROL [Concomitant]
     Active Substance: CHOLECALCIFEROL
  7. FERROUS SULFATE [Concomitant]
     Active Substance: FERROUS SULFATE\FERROUS SULFATE, DRIED
  8. HYDROCHLOROQUINE [Concomitant]
     Active Substance: HYDROXYCHLOROQUINE SULFATE
  9. LANSOPRAZOLE. [Concomitant]
     Active Substance: LANSOPRAZOLE
  10. ERGOCALCIFEROL. [Concomitant]
     Active Substance: ERGOCALCIFEROL
  11. FOLIC ACID. [Concomitant]
     Active Substance: FOLIC ACID
  12. SENNA [Concomitant]
     Active Substance: SENNA LEAF\SENNOSIDES\SENNOSIDES A AND B
  13. RIVAROXABAN [Suspect]
     Active Substance: RIVAROXABAN
     Indication: PULMONARY EMBOLISM
     Route: 048
     Dates: end: 20151208
  14. GABAPENTIN. [Concomitant]
     Active Substance: GABAPENTIN
  15. NAPROXEN. [Concomitant]
     Active Substance: NAPROXEN
  16. OXYCODONE [Concomitant]
     Active Substance: OXYCODONE

REACTIONS (3)
  - Post procedural complication [None]
  - Treatment noncompliance [None]
  - Cerebral infarction [None]

NARRATIVE: CASE EVENT DATE: 20151206
